FAERS Safety Report 5476083-7 (Version None)
Quarter: 2007Q4

REPORT INFORMATION
  Report Type: 
  Country: None (occurrence: None)
  Receive Date: 20071003
  Receipt Date: 20070921
  Transmission Date: 20080405
  Serious: Yes (Life-Threatening, Hospitalization)
  Sender: FDA-Public Use
  Company Number: DE-ELI_LILLY_AND_COMPANY-DE200706003694

PATIENT
  Age: 47 Year
  Sex: Female

DRUGS (16)
  1. IBUPROFEN [Concomitant]
     Dosage: 600 MG, 3/D
     Route: 065
  2. PREDNISOLONE [Concomitant]
     Dosage: 20 MG, EACH MORNING
     Route: 065
  3. KATADOLON [Concomitant]
     Dosage: UNK, DAILY (1/D) AT LUNCH TIME
     Route: 065
  4. TETRAZEPAM [Concomitant]
     Dosage: 50 MG, EACH EVENING
     Route: 065
  5. CLAVERSAL [Concomitant]
     Dosage: 500 MG, 3/D
     Route: 065
  6. CLAVERSAL [Concomitant]
     Dosage: 500 MG, 2/D
     Route: 065
  7. RABEPRAZOLE SODIUM [Concomitant]
     Dosage: 10 MG, DAILY (1/D)
     Route: 065
  8. CREON [Concomitant]
     Dosage: UNK, OTHER, 1-2 IN THE MORNING
     Route: 065
  9. CREON [Concomitant]
     Dosage: UNK, OTHER, 1-2 AT LUNCHTIME
     Route: 065
  10. CREON [Concomitant]
     Dosage: UNK, OTHER, 1-2 IN THE EVENING
     Route: 065
  11. LOPERAMID [Concomitant]
     Indication: DIARRHOEA
     Dosage: UNK, UNKNOWN
     Route: 065
  12. BUSCOPAN PLUS [Concomitant]
     Indication: DIARRHOEA
     Dosage: UNK, UNKNOWN
     Route: 065
  13. MCP [Concomitant]
     Indication: DIARRHOEA
     Dosage: UNK, UNKNOWN
     Route: 065
  14. VITAMINS [Concomitant]
     Dosage: UNK, UNKNOWN
     Route: 065
  15. MINERALS NOS [Concomitant]
     Dosage: UNK, UNKNOWN
     Route: 065
  16. CYMBALTA [Suspect]
     Indication: DEPRESSION
     Dosage: 60 MG, DAILY (1/D)
     Route: 048
     Dates: start: 20051201

REACTIONS (3)
  - ANEURYSM [None]
  - FIBROMYALGIA [None]
  - LOCKED-IN SYNDROME [None]
